FAERS Safety Report 10388844 (Version 1)
Quarter: 2014Q1

REPORT INFORMATION
  Report Type: Spontaneous
  Country: US (occurrence: None)
  Receive Date: 20140306
  Receipt Date: 20140306
  Transmission Date: 20141002
  Serious: Yes (Other)
  Sender: FDA-Public Use
  Company Number: 163-21880-13100186

PATIENT
  Age: 71 Year
  Sex: Male

DRUGS (9)
  1. REVLIMID (LENALIDOMIDE) (5 MILLIGRAM, CAPSULES) [Suspect]
     Indication: PLASMA CELL MYELOMA
     Dosage: 5 MG, 21 IN 21 D, PO
     Route: 048
     Dates: start: 20130408, end: 20130923
  2. ACYCLOVIR [Concomitant]
  3. ATIVAN (LORAZEPAM) [Concomitant]
  4. LISINOPRIL [Concomitant]
  5. LORAZEPAM [Concomitant]
  6. METOPROLOL TARTRATE [Concomitant]
  7. OXYCODONE HCL [Concomitant]
  8. RENA-VITE (NEPHROVITE) [Concomitant]
  9. HYDROCODONE ACETAMINOPHEN (VICODIN) [Concomitant]

REACTIONS (3)
  - Pancytopenia [None]
  - Staphylococcal bacteraemia [None]
  - Renal failure chronic [None]
